FAERS Safety Report 13877892 (Version 2)
Quarter: 2017Q3

REPORT INFORMATION
  Report Type: Spontaneous
  Country: IT (occurrence: IT)
  Receive Date: 20170817
  Receipt Date: 20170825
  Transmission Date: 20171127
  Serious: Yes (Hospitalization, Other)
  Sender: FDA-Public Use
  Company Number: PHHY2017IT118388

PATIENT
  Age: 52 Year
  Sex: Female

DRUGS (3)
  1. CIMETIDINE [Concomitant]
     Active Substance: CIMETIDINE
     Indication: PRODUCT USED FOR UNKNOWN INDICATION
     Route: 065
  2. RIMSTAR [Suspect]
     Active Substance: ETHAMBUTOL\ISONIAZID\PYRAZINAMIDE\RIFAMYCIN
     Indication: LYMPH NODE TUBERCULOSIS
     Dosage: 5 DF, QD
     Route: 048
     Dates: start: 20140311, end: 20140314
  3. METFORMIN [Concomitant]
     Active Substance: METFORMIN HYDROCHLORIDE
     Indication: PRODUCT USED FOR UNKNOWN INDICATION
     Route: 065

REACTIONS (4)
  - Arthralgia [Recovered/Resolved]
  - Musculoskeletal pain [Recovered/Resolved]
  - Aphthous ulcer [Recovered/Resolved]
  - Dizziness [Recovered/Resolved]

NARRATIVE: CASE EVENT DATE: 20140312
